FAERS Safety Report 5692833-9 (Version None)
Quarter: 2008Q2

REPORT INFORMATION
  Report Type: 
  Country: None (occurrence: None)
  Receive Date: 20080401
  Receipt Date: 20080318
  Transmission Date: 20081010
  Serious: Yes (Death)
  Sender: FDA-Public Use
  Company Number: 2008AL001891

PATIENT
  Age: 66 Year
  Sex: Male

DRUGS (9)
  1. CITALOPRAM HYDROBROMIDE [Suspect]
     Indication: DEPRESSION
     Dosage: 20 MG;
     Dates: start: 20070402
  2. OXYCODONE HCL [Suspect]
     Indication: MUSCULOSKELETAL PAIN
     Dosage: 80 MG;
     Dates: end: 20070416
  3. ACETAMINOPHEN [Suspect]
     Dates: start: 20070601, end: 20070601
  4. MIRTAZAPINE [Suspect]
     Dates: start: 20070601, end: 20070601
  5. ETORICOXIB [Concomitant]
  6. ETORICOXIB [Concomitant]
  7. DICLOFENAC [Concomitant]
  8. DIHYDROCODEINE [Concomitant]
  9. OXAZEPAM [Concomitant]

REACTIONS (3)
  - CORONARY ARTERY DISEASE [None]
  - DRUG INTERACTION [None]
  - MULTIPLE DRUG OVERDOSE [None]
